FAERS Safety Report 14138558 (Version 1)
Quarter: 2017Q4

REPORT INFORMATION
  Report Type: Spontaneous
  Country: US (occurrence: US)
  Receive Date: 20171027
  Receipt Date: 20171027
  Transmission Date: 20180321
  Serious: No
  Sender: FDA-Public Use
  Company Number: US-ROCHE-1910488

PATIENT
  Age: 24 Year
  Sex: Female

DRUGS (1)
  1. TAMIFLU [Suspect]
     Active Substance: OSELTAMIVIR PHOSPHATE
     Indication: INFLUENZA
     Dosage: FOR 5 DAYS
     Route: 048
     Dates: start: 20170320

REACTIONS (6)
  - Nausea [Unknown]
  - Abdominal pain [Not Recovered/Not Resolved]
  - Insomnia [Unknown]
  - Salivary hypersecretion [Unknown]
  - Diarrhoea [Unknown]
  - Fear [Unknown]

NARRATIVE: CASE EVENT DATE: 20170320
